FAERS Safety Report 7132809-8 (Version None)
Quarter: 2010Q4

REPORT INFORMATION
  Report Type: 
  Country: None (occurrence: None)
  Receive Date: 20101202
  Receipt Date: 20101119
  Transmission Date: 20110411
  Serious: No
  Sender: FDA-Public Use
  Company Number: US-PFIZER INC-001-0945-M0200165

PATIENT
  Sex: Female
  Weight: 61.2 kg

DRUGS (7)
  1. NEURONTIN [Suspect]
     Indication: NECK PAIN
     Dosage: UNK
     Route: 048
  2. NEURONTIN [Suspect]
     Indication: HEADACHE
     Dosage: UNK
     Route: 048
     Dates: end: 20070101
  3. NEURONTIN [Suspect]
     Indication: EYE PAIN
     Dosage: 900 MG, 3X/DAY
     Route: 048
     Dates: end: 20090101
  4. NEURONTIN [Suspect]
     Indication: BIPOLAR DISORDER
  5. NEURONTIN [Suspect]
     Indication: MIGRAINE
  6. EFFEXOR [Suspect]
     Dosage: UNK
     Route: 065
  7. ALPRAZOLAM [Concomitant]
     Dosage: UNK
     Route: 065

REACTIONS (5)
  - DRUG INEFFECTIVE [None]
  - GASTRIC ULCER [None]
  - INCORRECT DOSE ADMINISTERED [None]
  - INSOMNIA [None]
  - WEIGHT INCREASED [None]
